FAERS Safety Report 23130697 (Version 8)
Quarter: 2024Q2

REPORT INFORMATION
  Report Type: Spontaneous
  Country: PL (occurrence: PL)
  Receive Date: 20231031
  Receipt Date: 20240523
  Transmission Date: 20240716
  Serious: Yes (Hospitalization, Other)
  Sender: FDA-Public Use
  Company Number: PL-CHEPLA-2023012768

PATIENT
  Age: 29 Year
  Sex: Male

DRUGS (18)
  1. SERTRALINE [Interacting]
     Active Substance: SERTRALINE HYDROCHLORIDE
     Indication: Depression
     Dosage: 100 MILLIGRAM, QD,(100 MG, PER DAY)
     Route: 065
  2. OMEPRAZOLE SODIUM [Interacting]
     Active Substance: OMEPRAZOLE SODIUM
     Indication: Gastrooesophageal reflux disease
     Dosage: 40 MILLIGRAM,QD,(40 MG, PER DAY)
     Route: 065
  3. OMEPRAZOLE SODIUM [Interacting]
     Active Substance: OMEPRAZOLE SODIUM
     Indication: Burn oesophageal
  4. OMEPRAZOLE SODIUM [Interacting]
     Active Substance: OMEPRAZOLE SODIUM
     Indication: Burning sensation
  5. OMEPRAZOLE SODIUM [Interacting]
     Active Substance: OMEPRAZOLE SODIUM
     Indication: Eructation
  6. OMEPRAZOLE SODIUM [Interacting]
     Active Substance: OMEPRAZOLE SODIUM
     Indication: Dyspepsia
  7. OZEMPIC [Interacting]
     Active Substance: SEMAGLUTIDE
     Indication: Obesity
     Dosage: 0.25 MILLIGRAM, QW, FOR THE FIRST 2 WEEKS
     Route: 058
  8. OZEMPIC [Interacting]
     Active Substance: SEMAGLUTIDE
     Dosage: 1 MILLIGRAM, QW
     Route: 030
  9. ACETAMINOPHEN [Interacting]
     Active Substance: ACETAMINOPHEN
     Indication: Headache
     Dosage: 4000 MILLIGRAM, Q4D
     Route: 048
  10. ACETAMINOPHEN [Interacting]
     Active Substance: ACETAMINOPHEN
     Indication: Sedative therapy
     Dosage: 1000 MILLIGRAM, Q6H,(1000 MG FOUR TIMES DAILY)
     Route: 048
  11. ACETAMINOPHEN [Interacting]
     Active Substance: ACETAMINOPHEN
     Indication: Analgesic therapy
  12. BUPROPION HYDROCHLORIDE\NALTREXONE HYDROCHLORIDE [Interacting]
     Active Substance: BUPROPION HYDROCHLORIDE\NALTREXONE HYDROCHLORIDE
     Indication: Obesity
     Dosage: 2 DF, QD (8/90, 1 TABLET, TWICE DAILY (FOR 2 WK)
     Route: 065
  13. BUPROPION HYDROCHLORIDE\NALTREXONE HYDROCHLORIDE [Interacting]
     Active Substance: BUPROPION HYDROCHLORIDE\NALTREXONE HYDROCHLORIDE
     Dosage: 1 DOSAGE FORM, FOR 2 WEEKS
     Route: 065
  14. BUPROPION HYDROCHLORIDE\NALTREXONE HYDROCHLORIDE [Interacting]
     Active Substance: BUPROPION HYDROCHLORIDE\NALTREXONE HYDROCHLORIDE
     Dosage: 4 DOSAGE FORM, QD (8/90, 2 TABLETS, TWICE DAILY)
     Route: 065
  15. BUPROPION [Interacting]
     Active Substance: BUPROPION
     Indication: Obesity
     Dosage: 90 MILLIGRAM, BID,(1 TABLET, 90 MG,2X PER DAY)
     Route: 065
  16. NALTREXONE [Interacting]
     Active Substance: NALTREXONE
     Indication: Obesity
     Dosage: 8 MILLIGRAM, BID,(2 TABLET,8 MG, 2X PER DAY)
     Route: 065
  17. BUPROPION HYDROCHLORIDE\NALTREXONE HYDROCHLORIDE [Suspect]
     Active Substance: BUPROPION HYDROCHLORIDE\NALTREXONE HYDROCHLORIDE
     Indication: Obesity
     Dosage: 2 DOSAGE FORM, QD,(A DRUG USED IN COMBINATION WITH NALTREXONE. 1 TABLET TWICE DAILY FOR 2 WEEKS)
     Route: 065
  18. BUPROPION HYDROCHLORIDE\NALTREXONE HYDROCHLORIDE [Suspect]
     Active Substance: BUPROPION HYDROCHLORIDE\NALTREXONE HYDROCHLORIDE
     Dosage: 4 DOSAGE FORM,QD,(A DRUG USED IN COMBINATION WITH NALTREXONE. 2 TABLETS TWICE DAILY)
     Route: 065

REACTIONS (22)
  - Oedematous pancreatitis [Recovered/Resolved]
  - Pancreatitis [Recovered/Resolved]
  - Burn oesophageal [Recovered/Resolved]
  - Gastrointestinal oedema [Recovered/Resolved]
  - Abdominal distension [Recovered/Resolved]
  - Respiratory rate increased [Recovered/Resolved]
  - Flatulence [Recovered/Resolved]
  - Hypopnoea [Recovered/Resolved]
  - Pancreatic enlargement [Recovered/Resolved]
  - Abdominal pain upper [Recovered/Resolved]
  - Pyrexia [Recovered/Resolved]
  - Nausea [Recovered/Resolved]
  - Drug interaction [Recovered/Resolved]
  - Contraindicated product administered [Unknown]
  - Product administration error [Unknown]
  - Gastrooesophageal reflux disease [Unknown]
  - Headache [Recovered/Resolved]
  - Abdominal wall disorder [Recovered/Resolved]
  - Drug titration error [Unknown]
  - Dyspepsia [Unknown]
  - Oesophageal pain [Unknown]
  - Product use in unapproved indication [Unknown]
